FAERS Safety Report 6174552-8 (Version None)
Quarter: 2009Q2

REPORT INFORMATION
  Report Type: 
  Country: None (occurrence: None)
  Receive Date: 20090430
  Receipt Date: 20080718
  Transmission Date: 20091009
  Serious: No
  Sender: FDA-Public Use
  Company Number: US-ASTRAZENECA-2008UW15130

PATIENT
  Age: 61 Year
  Sex: Female

DRUGS (3)
  1. NEXIUM [Suspect]
     Indication: SCLERODERMA
     Dosage: 40 MG, 2 CAPSULES, DAILY
     Route: 048
  2. NEXIUM [Suspect]
     Indication: OESOPHAGEAL DISORDER
     Dosage: 40 MG, 2 CAPSULES, DAILY
     Route: 048
  3. NEXIUM [Suspect]
     Indication: HIATUS HERNIA
     Dosage: 40 MG, 2 CAPSULES, DAILY
     Route: 048

REACTIONS (1)
  - OESOPHAGEAL DISORDER [None]
